FAERS Safety Report 7941925-X (Version None)
Quarter: 2011Q4

REPORT INFORMATION
  Report Type: 
  Country: None (occurrence: None)
  Receive Date: 20111128
  Receipt Date: 20111124
  Transmission Date: 20120403
  Serious: Yes (Other)
  Sender: FDA-Public Use
  Company Number: JP-JNJFOC-20111105584

PATIENT
  Age: 71 Year
  Sex: Male

DRUGS (6)
  1. LOPERAMIDE HCL [Suspect]
     Indication: ENTEROSTOMY
     Route: 048
     Dates: start: 20110412
  2. COLONEL [Concomitant]
     Route: 048
     Dates: start: 20110412
  3. GASMOTIN [Concomitant]
     Route: 048
     Dates: start: 20110412
  4. LOPERAMIDE HCL [Suspect]
     Route: 048
  5. LANSOPRAZOLE [Concomitant]
     Route: 048
     Dates: start: 20111108
  6. BIO THREE [Concomitant]
     Route: 048
     Dates: start: 20110412

REACTIONS (1)
  - EROSIVE DUODENITIS [None]
